FAERS Safety Report 5078892-5 (Version None)
Quarter: 2006Q3

REPORT INFORMATION
  Report Type: 
  Country: None (occurrence: None)
  Receive Date: 20060809
  Receipt Date: 20060809
  Transmission Date: 20061208
  Serious: Yes (Life-Threatening, Hospitalization)
  Sender: FDA-Public Use
  Company Number: None

PATIENT
  Age: 27 Year
  Sex: Female
  Weight: 58.9676 kg

DRUGS (2)
  1. PAXIL [Suspect]
     Indication: DEPRESSION
     Dosage: 20 MG 1 DAY PO
     Route: 048
     Dates: start: 20050801, end: 20050801
  2. PAXIL CR [Suspect]
     Indication: DEPRESSION
     Dosage: 12.5 1 DAY PO
     Route: 048
     Dates: start: 20050901, end: 20050901

REACTIONS (6)
  - DRUG EFFECT DECREASED [None]
  - DRUG EXPOSURE DURING PREGNANCY [None]
  - POSTPARTUM DEPRESSION [None]
  - PREGNANCY [None]
  - SUICIDAL IDEATION [None]
  - SUICIDE ATTEMPT [None]
